FAERS Safety Report 23563359 (Version 2)
Quarter: 2024Q2

REPORT INFORMATION
  Report Type: Report from Study
  Country: US (occurrence: US)
  Receive Date: 20240226
  Receipt Date: 20240521
  Transmission Date: 20240716
  Serious: Yes (Other)
  Sender: FDA-Public Use
  Company Number: US-SANOFI-01951297

PATIENT
  Age: 75 Year
  Sex: Female

DRUGS (2)
  1. SARILUMAB [Suspect]
     Active Substance: SARILUMAB
     Indication: Rheumatoid arthritis
     Dosage: UNK UNK, QOW
     Dates: start: 2022
  2. VITAMIN D NOS [Concomitant]
     Active Substance: CHOLECALCIFEROL\ERGOCALCIFEROL
     Dosage: QW

REACTIONS (8)
  - Pneumonia bacterial [Unknown]
  - Eye swelling [Unknown]
  - Conjunctivitis [Unknown]
  - Vitamin D deficiency [Unknown]
  - Swelling face [Unknown]
  - Eye discharge [Unknown]
  - Immune system disorder [Unknown]
  - Influenza [Unknown]

NARRATIVE: CASE EVENT DATE: 20240101
